FAERS Safety Report 7427656-3 (Version None)
Quarter: 2011Q2

REPORT INFORMATION
  Report Type: 
  Country: None (occurrence: None)
  Receive Date: 20110408
  Receipt Date: 20110324
  Transmission Date: 20111010
  Serious: Yes (Hospitalization)
  Sender: FDA-Public Use
  Company Number: 2011030147

PATIENT
  Age: 87 Year
  Sex: Male

DRUGS (10)
  1. IMOVANE (ZOPICLONE) [Suspect]
     Dosage: 7.5 MG (7.5 MG,1 IN 1 D),ORAL
     Route: 048
     Dates: end: 20110207
  2. RECORMON (EPOETIN BETA) [Concomitant]
  3. TORSEMIDE [Suspect]
     Dosage: 10 MG (10 MG,1 IN 1 D),ORAL
     Route: 048
     Dates: end: 20110207
  4. XEFO (LORNOXICAM) [Concomitant]
  5. REMERON [Suspect]
     Indication: DEPRESSION
     Dosage: 45 MG (45 MG,1 IN 1 D),ORAL
     Route: 048
     Dates: end: 20110208
  6. PANTOZOL (PANTOPRAZOLE SODIUM SESQUIHYDRATE) [Suspect]
  7. SORBISTERIT (CALCIUM POLYSTYRENE SULFONATE) [Concomitant]
  8. PRADIF (TAMSULOSIN HCL) [Suspect]
     Indication: PROSTATE CANCER
     Dosage: 400 MCG (400 MCG,1 IN 1
  9. NITRODERM [Suspect]
     Dosage: 5 MG (5 MG,1 IN 1 D),TRANSDERMAL
     Route: 062
     Dates: end: 20110207
  10. PROSCAR [Concomitant]

REACTIONS (8)
  - TACHYARRHYTHMIA [None]
  - ANTIDEPRESSANT DRUG LEVEL ABOVE THERAPEUTIC [None]
  - FALL [None]
  - DRUG CLEARANCE DECREASED [None]
  - SUICIDAL IDEATION [None]
  - OVERDOSE [None]
  - CONTUSION [None]
  - TREATMENT NONCOMPLIANCE [None]
